FAERS Safety Report 5203562-X (Version None)
Quarter: 2007Q1

REPORT INFORMATION
  Report Type: 
  Country: None (occurrence: None)
  Receive Date: 20070110
  Receipt Date: 20070105
  Transmission Date: 20070707
  Serious: Yes (Hospitalization)
  Sender: FDA-Public Use
  Company Number: JP-JPN-A200604142

PATIENT
  Age: 37 Year
  Sex: Female
  Weight: 71 kg

DRUGS (10)
  1. PAXIL [Suspect]
     Indication: DEPRESSION
     Dosage: 137TAB PER DAY
     Route: 048
     Dates: start: 20061007, end: 20061007
  2. DEPAS [Suspect]
     Indication: DEPRESSION
     Dates: start: 20061007, end: 20061007
  3. UNKNOWN DRUG [Concomitant]
     Dates: start: 20061007
  4. AMOXAPINE [Concomitant]
  5. AMITRIPTYLINE HYDROCHLORIDE [Concomitant]
  6. BROMAZEPAM [Concomitant]
  7. ESTAZOLAM [Concomitant]
  8. MIANSERIN HYDROCHLORIDE [Concomitant]
  9. FLUNITRAZEPAM [Concomitant]
  10. BROTIZOLAM [Concomitant]

REACTIONS (12)
  - ACUTE RESPIRATORY DISTRESS SYNDROME [None]
  - CHEST X-RAY ABNORMAL [None]
  - CONVULSION [None]
  - COUGH [None]
  - DEPRESSED LEVEL OF CONSCIOUSNESS [None]
  - DYSPNOEA [None]
  - INTENTIONAL OVERDOSE [None]
  - INTERSTITIAL LUNG DISEASE [None]
  - PNEUMONIA ASPIRATION [None]
  - PULMONARY OEDEMA [None]
  - RESPIRATORY FAILURE [None]
  - SUICIDE ATTEMPT [None]
